FAERS Safety Report 17801725 (Version 2)
Quarter: 2020Q3

REPORT INFORMATION
  Report Type: Spontaneous
  Country: US (occurrence: US)
  Receive Date: 20200519
  Receipt Date: 20200704
  Transmission Date: 20201102
  Serious: No
  Sender: FDA-Public Use
  Company Number: US-TEVA-2020-US-1237922

PATIENT
  Sex: Female

DRUGS (1)
  1. SYNRIBO [Suspect]
     Active Substance: OMACETAXINE MEPESUCCINATE
     Indication: PRODUCT USED FOR UNKNOWN INDICATION
     Dosage: SYNRIBO 1.75MG BID FOR 7 DAYS THEN 21 DAYS OFF
     Route: 065
     Dates: start: 20200310

REACTIONS (4)
  - Nausea [Unknown]
  - Neuralgia [Unknown]
  - Asthenia [Unknown]
  - Immunoglobulins decreased [Unknown]
